FAERS Safety Report 13489985 (Version 2)
Quarter: 2017Q2

REPORT INFORMATION
  Report Type: Report from Study
  Country: KR (occurrence: KR)
  Receive Date: 20170427
  Receipt Date: 20170501
  Transmission Date: 20170830
  Serious: Yes (Other)
  Sender: FDA-Public Use
  Company Number: KR-JNJFOC-20170420924

PATIENT
  Sex: Male

DRUGS (1)
  1. REMICADE [Suspect]
     Active Substance: INFLIXIMAB
     Indication: CROHN^S DISEASE
     Route: 042
     Dates: start: 2012

REACTIONS (10)
  - Drug ineffective [Unknown]
  - Decreased immune responsiveness [Unknown]
  - Asthenia [Unknown]
  - Anal fistula [Unknown]
  - Stomatitis [Not Recovered/Not Resolved]
  - Product use issue [Unknown]
  - Crohn^s disease [Unknown]
  - Fatigue [Unknown]
  - Off label use [Unknown]
  - Dermatitis [Recovering/Resolving]
